FAERS Safety Report 9765726 (Version 1)
Quarter: 2013Q4

REPORT INFORMATION
  Report Type: Spontaneous
  Country: US (occurrence: US)
  Receive Date: 20131217
  Receipt Date: 20131217
  Transmission Date: 20140711
  Serious: No
  Sender: FDA-Public Use
  Company Number: US-GLAXOSMITHKLINE-A1011139A

PATIENT
  Age: 59 Year
  Sex: Male
  Weight: 101.8 kg

DRUGS (12)
  1. VOTRIENT [Suspect]
     Indication: THYROID CANCER METASTATIC
     Dosage: 800MG PER DAY
     Route: 048
  2. CENTRUM SILVER [Concomitant]
  3. METFORMIN [Concomitant]
  4. LISINOPRIL [Concomitant]
  5. SIMVASTATIN [Concomitant]
  6. GLYBURIDE [Concomitant]
  7. HYDROCHLOROTHIAZIDE [Concomitant]
  8. LEVOTHYROXINE [Concomitant]
  9. ALLOPURINOL [Concomitant]
  10. BUFFERED ASPIRIN [Concomitant]
  11. VITAMIN B COMPLEX [Concomitant]
  12. CALCIUM [Concomitant]

REACTIONS (1)
  - Diarrhoea [Unknown]
